FAERS Safety Report 8124452-9 (Version None)
Quarter: 2012Q1

REPORT INFORMATION
  Report Type: 
  Country: None (occurrence: None)
  Receive Date: 20120209
  Receipt Date: 20120206
  Transmission Date: 20120608
  Serious: Yes (Hospitalization)
  Sender: FDA-Public Use
  Company Number: IT-SANOFI-AVENTIS-2012SA007661

PATIENT
  Age: 67 Year
  Sex: Female

DRUGS (11)
  1. MIRTAZAPINE [Concomitant]
  2. NEO-LOTAN PLUS [Concomitant]
  3. LUCEN [Concomitant]
  4. PLAQUENIL [Suspect]
     Indication: ARTHRALGIA
     Route: 048
     Dates: start: 20120125, end: 20120131
  5. DOXAZOSIN MESYLATE [Concomitant]
  6. MEDROL [Concomitant]
  7. SULODEXIDE [Concomitant]
  8. SERTRALINE HYDROCHLORIDE [Concomitant]
  9. FLUTICASONE PROPIONATE/SALMETEROL [Concomitant]
  10. TICLOPIDINE HCL [Concomitant]
  11. SPIRIVA [Concomitant]

REACTIONS (1)
  - AUTOIMMUNE THROMBOCYTOPENIA [None]
